FAERS Safety Report 4906271-7 (Version None)
Quarter: 2006Q1

REPORT INFORMATION
  Report Type: 
  Country: None (occurrence: None)
  Receive Date: 20060207
  Receipt Date: 20060127
  Transmission Date: 20060701
  Serious: Yes (Hospitalization)
  Sender: FDA-Public Use
  Company Number: 2005111558

PATIENT
  Age: 92 Year
  Sex: Female

DRUGS (5)
  1. AMLODIPINE [Suspect]
     Indication: ILL-DEFINED DISORDER
     Dosage: 5 MG (5 MG, DAILY) , ORAL
     Route: 048
  2. ACETYLSALICYLATE LYSINE (ACETYLSALICYLATE LYSINE) [Suspect]
     Indication: ILL-DEFINED DISORDER
     Dosage: 75 MG (DAILY), ORAL
     Route: 048
  3. CORVASAL (MOLSIDOMINE) [Suspect]
     Indication: ILL-DEFINED DISORDER
     Dosage: 12 MG (4 MG, TID), ORAL
     Route: 048
  4. SECTRAL [Suspect]
     Indication: ILL-DEFINED DISORDER
     Dosage: 100 MG (200 MG,DAILY) , ORAL
     Route: 048
  5. PANTOPRAZOLE SODIUM [Suspect]
     Indication: ILL-DEFINED DISORDER
     Dosage: 20 MG (DAILY), ORAL
     Route: 048
     Dates: start: 20050114, end: 20050628

REACTIONS (5)
  - BLOOD SODIUM DECREASED [None]
  - COGNITIVE DISORDER [None]
  - DISORIENTATION [None]
  - FALL [None]
  - TONGUE DRY [None]
